FAERS Safety Report 4803255-4 (Version None)
Quarter: 2005Q4

REPORT INFORMATION
  Report Type: 
  Country: None (occurrence: None)
  Receive Date: 20051013
  Receipt Date: 20050928
  Transmission Date: 20060501
  Serious: Yes (Other)
  Sender: FDA-Public Use
  Company Number: USA040360594

PATIENT
  Age: 75 Year
  Sex: Female

DRUGS (1)
  1. EVISTA [Suspect]

REACTIONS (10)
  - ASTHENIA [None]
  - BEDRIDDEN [None]
  - BLOOD PRESSURE INCREASED [None]
  - DRUG INTOLERANCE [None]
  - FALL [None]
  - GAIT DISTURBANCE [None]
  - MUSCLE STRAIN [None]
  - OSTEOARTHRITIS [None]
  - UPPER LIMB FRACTURE [None]
  - WRIST FRACTURE [None]
